FAERS Safety Report 18145503 (Version 5)
Quarter: 2020Q4

REPORT INFORMATION
  Report Type: Spontaneous
  Country: US (occurrence: US)
  Receive Date: 20200813
  Receipt Date: 20201224
  Transmission Date: 20210113
  Serious: Yes (Hospitalization, Other)
  Sender: FDA-Public Use
  Company Number: US-SHIRE-US202025700

PATIENT
  Sex: Female

DRUGS (4)
  1. GATTEX [Suspect]
     Active Substance: TEDUGLUTIDE\WATER
     Indication: SHORT-BOWEL SYNDROME
     Dosage: 0.2990
     Route: 058
     Dates: start: 20160121
  2. GATTEX [Suspect]
     Active Substance: TEDUGLUTIDE\WATER
     Indication: SHORT-BOWEL SYNDROME
     Dosage: 0.2990
     Route: 058
     Dates: start: 20160121
  3. GATTEX [Suspect]
     Active Substance: TEDUGLUTIDE\WATER
     Indication: SHORT-BOWEL SYNDROME
     Dosage: 0.2990
     Route: 058
     Dates: start: 20160121
  4. GATTEX [Suspect]
     Active Substance: TEDUGLUTIDE\WATER
     Indication: SHORT-BOWEL SYNDROME
     Dosage: 0.2990
     Route: 058
     Dates: start: 20160121

REACTIONS (5)
  - Cellulitis [Unknown]
  - Fall [Unknown]
  - Hip fracture [Recovering/Resolving]
  - Protein total decreased [Not Recovered/Not Resolved]
  - Surgery [Recovered/Resolved]
